FAERS Safety Report 4596221-8 (Version None)
Quarter: 2005Q1

REPORT INFORMATION
  Report Type: 
  Country: None (occurrence: None)
  Receive Date: 20050302
  Receipt Date: 20050216
  Transmission Date: 20050727
  Serious: Yes (Hospitalization, Disabling)
  Sender: FDA-Public Use
  Company Number: US-GLAXOSMITHKLINE-A0545870A

PATIENT
  Age: 65 Year
  Sex: Female
  Weight: 77.3 kg

DRUGS (1)
  1. NICORETTE [Suspect]
     Indication: CROHN'S DISEASE
     Route: 002
     Dates: start: 19990101

REACTIONS (5)
  - ABASIA [None]
  - DRUG ABUSER [None]
  - DYSARTHRIA [None]
  - STRABISMUS [None]
  - VISUAL ACUITY REDUCED [None]
